FAERS Safety Report 15223545 (Version 1)
Quarter: 2018Q3

REPORT INFORMATION
  Report Type: Report from Study
  Country: CA (occurrence: CA)
  Receive Date: 20180731
  Receipt Date: 20180731
  Transmission Date: 20181010
  Serious: Yes (Other)
  Sender: FDA-Public Use
  Company Number: CA-TAKEDA-2018TUS023344

PATIENT
  Age: 69 Year
  Sex: Male

DRUGS (10)
  1. VEDOLIZUMAB [Suspect]
     Active Substance: VEDOLIZUMAB
     Indication: COLITIS ULCERATIVE
     Dosage: 300 MG, UNK
     Route: 042
     Dates: start: 20160927
  2. ENTRESTO [Concomitant]
     Active Substance: SACUBITRIL\VALSARTAN
     Indication: BLOOD PRESSURE ABNORMAL
     Dosage: 25 MG, UNK
  3. ELIDEL [Concomitant]
     Active Substance: PIMECROLIMUS
     Indication: DRY SKIN
     Dosage: UNK
  4. FUCIDINE                           /00065701/ [Concomitant]
     Active Substance: FUSIDIC ACID
     Indication: SKIN BACTERIAL INFECTION
     Dosage: UNK UNK, QD
  5. EFUDEX [Concomitant]
     Active Substance: FLUOROURACIL
     Indication: PIGMENTATION DISORDER
     Dosage: UNK
  6. ELIQUIS [Concomitant]
     Active Substance: APIXABAN
     Indication: ANTICOAGULANT THERAPY
     Dosage: 5 MG, BID
  7. ROSUVASTATIN. [Concomitant]
     Active Substance: ROSUVASTATIN
     Indication: BLOOD CHOLESTEROL INCREASED
     Dosage: 10 MG, QD
  8. AMITRIPTYLINE [Concomitant]
     Active Substance: AMITRIPTYLINE
     Indication: SLEEP DISORDER
     Dosage: 20 MG, QD
  9. VEDOLIZUMAB [Suspect]
     Active Substance: VEDOLIZUMAB
     Dosage: 300 MG, UNK
     Route: 042
     Dates: start: 20170810
  10. CARVEDILOL. [Concomitant]
     Active Substance: CARVEDILOL
     Indication: ATRIAL FIBRILLATION
     Dosage: 37.5 MG, BID
     Dates: start: 201511

REACTIONS (2)
  - Skin cancer [Unknown]
  - Off label use [Unknown]

NARRATIVE: CASE EVENT DATE: 20170810
